FAERS Safety Report 23720216 (Version 2)
Quarter: 2024Q3

REPORT INFORMATION
  Report Type: Spontaneous
  Country: GB (occurrence: GB)
  Receive Date: 20240408
  Receipt Date: 20240731
  Transmission Date: 20241017
  Serious: Yes (Hospitalization, Other)
  Sender: MYLAN
  Company Number: GB-MYLANLABS-2024M1030214

PATIENT
  Sex: Male

DRUGS (3)
  1. CLOZARIL [Suspect]
     Active Substance: CLOZAPINE
     Indication: Schizophrenia
     Dosage: 475 MILLIGRAM
     Route: 048
     Dates: start: 20170502
  2. CLOZARIL [Suspect]
     Active Substance: CLOZAPINE
     Dosage: 400 MILLIGRAM
     Route: 065
  3. CLOZARIL [Suspect]
     Active Substance: CLOZAPINE
     Dosage: 375 MILLIGRAM, QD (75   MG IN MORNING AND 300 MG IN EVENING)
     Route: 065

REACTIONS (8)
  - Tachycardia [Unknown]
  - Palpitations [Unknown]
  - Myocarditis [Unknown]
  - Memory impairment [Unknown]
  - Antipsychotic drug level increased [Not Recovered/Not Resolved]
  - White blood cell count increased [Unknown]
  - Blood prolactin increased [Unknown]
  - Blood triglycerides increased [Unknown]

NARRATIVE: CASE EVENT DATE: 20240101
